FAERS Safety Report 18078249 (Version 1)
Quarter: 2020Q3

REPORT INFORMATION
  Report Type: Spontaneous
  Country: US (occurrence: US)
  Receive Date: 20200727
  Receipt Date: 20200727
  Transmission Date: 20201103
  Serious: Yes (Death)
  Sender: FDA-Public Use
  Company Number: None

PATIENT
  Age: 73 Year
  Sex: Female
  Weight: 101 kg

DRUGS (1)
  1. REMDESIVIR. [Suspect]
     Active Substance: REMDESIVIR
     Indication: COVID-19 PNEUMONIA
     Route: 040
     Dates: start: 20200722, end: 20200725

REACTIONS (5)
  - Respiratory failure [None]
  - Unresponsive to stimuli [None]
  - Bilevel positive airway pressure [None]
  - Anxiety [None]
  - Acute respiratory failure [None]

NARRATIVE: CASE EVENT DATE: 20200726
